FAERS Safety Report 5974831-0 (Version None)
Quarter: 2008Q4

REPORT INFORMATION
  Report Type: 
  Country: None (occurrence: None)
  Receive Date: 20081201
  Receipt Date: 20081124
  Transmission Date: 20090506
  Serious: Yes (Other)
  Sender: FDA-Public Use
  Company Number: US-PFIZER INC-2008100534

PATIENT
  Sex: Female
  Weight: 43.181 kg

DRUGS (5)
  1. CHANTIX [Suspect]
     Indication: SMOKING CESSATION THERAPY
     Dates: start: 20081111
  2. OXYCONTIN [Concomitant]
  3. ALL OTHER THERAPEUTIC PRODUCTS [Concomitant]
  4. SOMA [Concomitant]
  5. NEXIUM [Concomitant]

REACTIONS (6)
  - AGITATION [None]
  - ANXIETY [None]
  - DRUG INEFFECTIVE [None]
  - IRRITABILITY [None]
  - MOOD ALTERED [None]
  - VIOLENCE-RELATED SYMPTOM [None]
